FAERS Safety Report 8171971-5 (Version None)
Quarter: 2012Q1

REPORT INFORMATION
  Report Type: 
  Country: None (occurrence: None)
  Receive Date: 20120228
  Receipt Date: 20120223
  Transmission Date: 20120608
  Serious: Yes (Other)
  Sender: FDA-Public Use
  Company Number: US-B.I. PHARMACEUTICALS,INC./RIDGEFIELD-2012-BP-01269BP

PATIENT
  Sex: Female
  Weight: 54.4 kg

DRUGS (7)
  1. LEVOXYL [Concomitant]
  2. HYDROCHLOROTHIAZIDE [Concomitant]
  3. LISINOPRIL [Concomitant]
  4. PRADAXA [Suspect]
     Indication: ATRIAL FIBRILLATION
     Dosage: 300 MG
     Route: 048
     Dates: start: 20101216, end: 20110818
  5. VYTORIN [Concomitant]
  6. METOPROLOL [Concomitant]
  7. PEPCID [Concomitant]

REACTIONS (3)
  - FALL [None]
  - HEAD INJURY [None]
  - CEREBRAL HAEMORRHAGE [None]
